FAERS Safety Report 8912273 (Version 1)
Quarter: 2012Q4

REPORT INFORMATION
  Report Type: 
  Country: SE (occurrence: SE)
  Receive Date: 20121115
  Receipt Date: 20121115
  Transmission Date: 20130627
  Serious: Yes (Hospitalization)
  Sender: FDA-Public Use
  Company Number: SE-PFIZER INC-2012281300

PATIENT
  Age: 25 Year
  Sex: Male
  Weight: 88.1 kg

DRUGS (4)
  1. GENOTROPIN [Suspect]
     Dosage: 0.8 mg, 1x/day, 7 injections/week
     Route: 058
     Dates: start: 20060415
  2. MINRIN SPRAY [Concomitant]
     Indication: BLOOD ANTIDIURETIC HORMONE DECREASED
     Dosage: UNK
     Dates: start: 19940615
  3. HYDROCORTONE [Concomitant]
     Indication: ADRENAL INSUFFICIENCY
     Dosage: UNK
     Dates: start: 19940615
  4. LEVAXIN [Concomitant]
     Indication: HYPOTHYROIDISM
     Dosage: UNK
     Dates: start: 19940615

REACTIONS (2)
  - Pyrexia [Unknown]
  - Vomiting [Unknown]
